FAERS Safety Report 7791394-8 (Version None)
Quarter: 2011Q4

REPORT INFORMATION
  Report Type: 
  Country: None (occurrence: None)
  Receive Date: 20111003
  Receipt Date: 20110921
  Transmission Date: 20120403
  Serious: Yes (Other)
  Sender: FDA-Public Use
  Company Number: CA-ELI_LILLY_AND_COMPANY-CA201109006087

PATIENT
  Sex: Female

DRUGS (8)
  1. DALMANE [Concomitant]
  2. VALPROATE SODIUM [Concomitant]
  3. STELAZINE [Concomitant]
  4. TRAZODONE HYDROCHLORIDE [Concomitant]
  5. ZYPREXA [Suspect]
     Indication: BIPOLAR DISORDER
     Dosage: 5 MG, EACH EVENING
  6. ZYPREXA [Suspect]
     Dosage: 2.5 MG, EACH EVENING
  7. EFFEXOR [Concomitant]
  8. CLONAZEPAM [Concomitant]

REACTIONS (10)
  - BRONCHITIS [None]
  - BLOOD CHOLESTEROL INCREASED [None]
  - RENAL FAILURE [None]
  - CHEST PAIN [None]
  - CATARACT [None]
  - WEIGHT INCREASED [None]
  - BLOOD URINE PRESENT [None]
  - DIABETES MELLITUS [None]
  - HYPERTENSION [None]
  - BLOOD TRIGLYCERIDES INCREASED [None]
